FAERS Safety Report 5895479-2 (Version None)
Quarter: 2008Q3

REPORT INFORMATION
  Report Type: 
  Country: None (occurrence: None)
  Receive Date: 20080924
  Receipt Date: 20080917
  Transmission Date: 20090109
  Serious: Yes (Other)
  Sender: FDA-Public Use
  Company Number: US-AVENTIS-200816113US

PATIENT
  Sex: Male

DRUGS (4)
  1. LOVENOX [Suspect]
     Dates: start: 20080914
  2. VICODIN [Suspect]
     Dosage: DOSE: UNK
  3. OXYCONTIN [Suspect]
     Dosage: DOSE: UNK
  4. FENTANYL TRANSDERMAL SYSTEM [Suspect]
     Dosage: DOSE: UNK

REACTIONS (1)
  - PANIC ATTACK [None]
